FAERS Safety Report 6846851-5 (Version None)
Quarter: 2010Q3

REPORT INFORMATION
  Report Type: 
  Country: None (occurrence: None)
  Receive Date: 20100712
  Receipt Date: 20100629
  Transmission Date: 20110219
  Serious: Yes (Hospitalization)
  Sender: FDA-Public Use
  Company Number: 014971

PATIENT
  Age: 29 Year
  Sex: Female

DRUGS (4)
  1. LEVETIRACETAM (LEVETIRACETAM) [Suspect]
     Indication: CONVULSION
     Dosage: (3000 MG)
  2. OXCARBAZEPINE [Suspect]
     Indication: CONVULSION
     Dosage: (2400 MG)
  3. TOPIRAMATE [Suspect]
     Indication: CONVULSION
     Dosage: 300 MG
  4. PHENOBARBITAL TAB [Suspect]
     Indication: CONVULSION
     Dosage: 50 MG

REACTIONS (8)
  - ANURIA [None]
  - APHASIA [None]
  - CAESAREAN SECTION [None]
  - DYSARTHRIA [None]
  - FEELING DRUNK [None]
  - LOSS OF CONSCIOUSNESS [None]
  - NEPHROLITHIASIS [None]
  - SPEECH DISORDER [None]
